FAERS Safety Report 20497208 (Version 2)
Quarter: 2022Q1

REPORT INFORMATION
  Report Type: Report from Study
  Country: FI (occurrence: FI)
  Receive Date: 20220221
  Receipt Date: 20220328
  Transmission Date: 20220423
  Serious: Yes (Life-Threatening, Other)
  Sender: FDA-Public Use
  Company Number: FI-MYLANLABS-2022M1013075

PATIENT
  Age: 43 Year
  Sex: Female

DRUGS (19)
  1. CLOZAPINE [Suspect]
     Active Substance: CLOZAPINE
     Indication: Schizophrenia
     Dosage: UNK
     Dates: start: 2017, end: 2019
  2. CLOZAPINE [Suspect]
     Active Substance: CLOZAPINE
     Dosage: UNK
     Dates: start: 2019, end: 2021
  3. CLOZAPINE [Suspect]
     Active Substance: CLOZAPINE
     Dosage: UNK, QD (500-600 MG)
  4. CLOZAPINE [Suspect]
     Active Substance: CLOZAPINE
     Dosage: 700 MILLIGRAM, QD
  5. CLOZAPINE [Suspect]
     Active Substance: CLOZAPINE
     Dosage: 300 MILLIGRAM, QD
     Dates: start: 2022, end: 2022
  6. CLOZAPINE [Suspect]
     Active Substance: CLOZAPINE
     Dosage: 400 MILLIGRAM, QD
     Dates: start: 2022
  7. RISPERIDONE [Suspect]
     Active Substance: RISPERIDONE
     Indication: Schizophrenia
     Dosage: 1 DOSAGE FORM, QD
     Route: 048
     Dates: end: 201702
  8. RISPERIDONE [Suspect]
     Active Substance: RISPERIDONE
     Dosage: UNK
     Dates: start: 202112, end: 202202
  9. LAMICTAL [Suspect]
     Active Substance: LAMOTRIGINE
     Indication: Schizophrenia
     Dosage: 200 MILLIGRAM, QD
  10. HERCEPTIN [Suspect]
     Active Substance: TRASTUZUMAB
     Indication: Product used for unknown indication
     Dosage: 600 MILLIGRAM, MONTHLY
     Route: 058
     Dates: start: 2021, end: 202202
  11. PANTOPRAZOLE SODIUM [Concomitant]
     Active Substance: PANTOPRAZOLE SODIUM
     Dosage: 40 MILLIGRAM, QD (ONCE DAILY)
  12. POLYETHYLENE GLYCOL 4000 [Concomitant]
     Active Substance: POLYETHYLENE GLYCOL 4000
     Dosage: 12 GRAM, QD (ONCE DAILY)
  13. BISOPROLOL [Concomitant]
     Active Substance: BISOPROLOL
     Dosage: 2.5 MILLIGRAM, QD (ONCE DAILY)
  14. LITHIUM CARBONATE [Concomitant]
     Active Substance: LITHIUM CARBONATE
     Dosage: 900 MILLIGRAM, QD (ONCE DAILY)
  15. FLUTICASONE FUROATE [Concomitant]
     Active Substance: FLUTICASONE FUROATE
     Dosage: 27.5 MICROGRAM, BID (TWICE DAILY)
  16. Tenox [Concomitant]
     Dosage: 10 MILLIGRAM, PRN (ONCE DAILY WHEN NEEDED)
  17. OLANZAPINE [Concomitant]
     Active Substance: OLANZAPINE
     Dosage: UNK
     Route: 048
     Dates: start: 201903
  18. OLANZAPINE [Concomitant]
     Active Substance: OLANZAPINE
     Dosage: UNK
     Dates: start: 202112, end: 202202
  19. OLANZAPINE [Concomitant]
     Active Substance: OLANZAPINE
     Dosage: UNK

REACTIONS (7)
  - Neutropenia [Recovered/Resolved]
  - Herpes zoster [Unknown]
  - Breast cancer [Unknown]
  - Antipsychotic drug level increased [Unknown]
  - Granulocyte count decreased [Unknown]
  - Influenza [Unknown]
  - Off label use [Unknown]

NARRATIVE: CASE EVENT DATE: 20190101
